FAERS Safety Report 4668357-4 (Version None)
Quarter: 2005Q2

REPORT INFORMATION
  Report Type: 
  Country: None (occurrence: None)
  Receive Date: 20050519
  Receipt Date: 20050506
  Transmission Date: 20051028
  Serious: Yes (Other)
  Sender: FDA-Public Use
  Company Number: 2005025428

PATIENT
  Age: 50 Year
  Sex: Male
  Weight: 68.0396 kg

DRUGS (1)
  1. CELEBREX [Suspect]
     Indication: ARTHRITIS
     Dosage: 200 MG (200 MG, 1 IN 1 D), ORAL
     Route: 048
     Dates: end: 20050101

REACTIONS (8)
  - BACK PAIN [None]
  - CHEST PAIN [None]
  - DYSPEPSIA [None]
  - FLATULENCE [None]
  - INJURY [None]
  - PAIN IN EXTREMITY [None]
  - ROAD TRAFFIC ACCIDENT [None]
  - SPINAL DISORDER [None]
